FAERS Safety Report 4454814-2 (Version None)
Quarter: 2004Q3

REPORT INFORMATION
  Report Type: 
  Country: None (occurrence: None)
  Receive Date: 20040826
  Receipt Date: 20040615
  Transmission Date: 20050211
  Serious: No
  Sender: FDA-Public Use
  Company Number: 2004US002133

PATIENT
  Age: 63 Year
  Sex: Female
  Weight: 77.1 kg

DRUGS (6)
  1. ALOXI [Suspect]
     Dosage: INTRAVENOUS (SEE IMAGE)
     Route: 042
     Dates: start: 20040315, end: 20040315
  2. ALOXI [Suspect]
     Dosage: INTRAVENOUS (SEE IMAGE)
     Route: 042
     Dates: start: 20040412, end: 20040412
  3. DECADRON [Concomitant]
  4. ATIVAN [Concomitant]
  5. CISPLATIN [Concomitant]
  6. FLUOROURACIL [Concomitant]

REACTIONS (1)
  - PRURITUS [None]
